FAERS Safety Report 12478039 (Version 2)
Quarter: 2016Q2

REPORT INFORMATION
  Report Type: Spontaneous
  Country: IT (occurrence: IT)
  Receive Date: 20160617
  Receipt Date: 20160621
  Transmission Date: 20160815
  Serious: Yes (Other)
  Sender: FDA-Public Use
  Company Number: IT-BAUSCH-BL-2016-014330

PATIENT
  Age: 49 Year
  Sex: Male

DRUGS (4)
  1. FLUOROURACIL. [Suspect]
     Active Substance: FLUOROURACIL
     Indication: SQUAMOUS CELL CARCINOMA
     Route: 065
     Dates: end: 200808
  2. CARBOPLATIN. [Suspect]
     Active Substance: CARBOPLATIN
     Route: 065
     Dates: end: 200808
  3. CARBOPLATIN. [Suspect]
     Active Substance: CARBOPLATIN
     Indication: DACRYOSTENOSIS ACQUIRED
     Route: 065
     Dates: start: 200805
  4. FLUOROURACIL. [Suspect]
     Active Substance: FLUOROURACIL
     Indication: DACRYOSTENOSIS ACQUIRED
     Route: 065
     Dates: start: 200805

REACTIONS (2)
  - Neutropenia [Unknown]
  - Thrombocytopenia [Unknown]

NARRATIVE: CASE EVENT DATE: 2008
